FAERS Safety Report 9410282 (Version 7)
Quarter: 2014Q2

REPORT INFORMATION
  Report Type: Report from Study
  Country: JP (occurrence: JP)
  Receive Date: 20130719
  Receipt Date: 20140630
  Transmission Date: 20141212
  Serious: Yes (Hospitalization)
  Sender: FDA-Public Use
  Company Number: JP-PFIZER INC-2013207868

PATIENT
  Age: 82 Year
  Sex: Male
  Weight: 43 kg

DRUGS (6)
  1. AXITINIB [Suspect]
     Indication: RENAL CELL CARCINOMA
     Dosage: 5 MG, 2X/DAY
     Route: 048
     Dates: start: 20130301, end: 20130416
  2. AXITINIB [Suspect]
     Dosage: 5 MG, 2X/DAY
     Route: 048
     Dates: start: 20130509, end: 20130714
  3. BLOPRESS [Concomitant]
     Indication: HYPERTENSION
     Dosage: 8 MG, 1X/DAY
     Route: 048
     Dates: start: 20130309, end: 20130420
  4. AMLODIPINE [Concomitant]
     Indication: HYPERTENSION
     Dosage: 5 MG, 2X/DAY (10 MG/DAY)
     Route: 048
     Dates: start: 20130311, end: 20130418
  5. AMLODIPINE [Concomitant]
     Dosage: 5 MG, 2X/DAY (10 MG/DAY)
     Route: 048
     Dates: start: 20130606, end: 20130718
  6. THYRADIN S [Concomitant]
     Indication: THYROID DISORDER
     Dosage: 50 UG, 1X/DAY
     Route: 048
     Dates: start: 20130704

REACTIONS (3)
  - Pneumothorax [Recovering/Resolving]
  - Pneumothorax [Recovered/Resolved]
  - Gastric ulcer [Recovering/Resolving]
